FAERS Safety Report 16860020 (Version 1)
Quarter: 2019Q3

REPORT INFORMATION
  Report Type: Spontaneous
  Country: US (occurrence: US)
  Receive Date: 20190927
  Receipt Date: 20190927
  Transmission Date: 20191005
  Serious: No
  Sender: FDA-Public Use
  Company Number: US-BAUSCH-BL-2019-025937

PATIENT
  Age: 99 Year
  Sex: Female

DRUGS (2)
  1. METAMUCIL [Suspect]
     Active Substance: PLANTAGO SEED
     Indication: DIARRHOEA
     Route: 065
     Dates: start: 2019, end: 2019
  2. TRULANCE [Suspect]
     Active Substance: PLECANATIDE
     Indication: CONSTIPATION
     Route: 048
     Dates: start: 201908

REACTIONS (4)
  - Asthenia [Not Recovered/Not Resolved]
  - Diarrhoea [Not Recovered/Not Resolved]
  - Ill-defined disorder [Unknown]
  - Product packaging difficult to open [Unknown]

NARRATIVE: CASE EVENT DATE: 2019
